FAERS Safety Report 12822299 (Version 1)
Quarter: 2016Q4

REPORT INFORMATION
  Report Type: Spontaneous
  Country: FR (occurrence: FR)
  Receive Date: 20161007
  Receipt Date: 20161007
  Transmission Date: 20170207
  Serious: Yes (Hospitalization)
  Sender: FDA-Public Use
  Company Number: FR-ZYDUS-012311

PATIENT
  Age: 55 Year
  Sex: Male

DRUGS (6)
  1. MORPHINE [Concomitant]
     Active Substance: MORPHINE
     Indication: PAIN IN EXTREMITY
     Route: 065
  2. PARACETAMOL/TRAMADOL [Suspect]
     Active Substance: ACETAMINOPHEN\TRAMADOL
     Indication: PAIN IN EXTREMITY
     Route: 065
  3. DICLOFENAC [Concomitant]
     Active Substance: DICLOFENAC
     Indication: PAIN IN EXTREMITY
     Route: 065
  4. KETOPROFEN. [Concomitant]
     Active Substance: KETOPROFEN
     Indication: PAIN IN EXTREMITY
     Route: 065
  5. METFORMIN [Suspect]
     Active Substance: METFORMIN HYDROCHLORIDE
     Indication: TYPE 1 DIABETES MELLITUS
     Route: 065
  6. PREDNISONE. [Concomitant]
     Active Substance: PREDNISONE
     Indication: PAIN IN EXTREMITY
     Route: 065

REACTIONS (3)
  - Condition aggravated [Recovered/Resolved]
  - Therapy non-responder [Unknown]
  - Diabetic neuropathy [Recovered/Resolved]
